FAERS Safety Report 6892738-1 (Version None)
Quarter: 2010Q3

REPORT INFORMATION
  Report Type: 
  Country: None (occurrence: None)
  Receive Date: 20100731
  Receipt Date: 20080830
  Transmission Date: 20110219
  Serious: No
  Sender: FDA-Public Use
  Company Number: US-PFIZER INC-2008067227

PATIENT
  Sex: Female

DRUGS (3)
  1. NORVASC [Suspect]
     Indication: HYPERTENSION
  2. CLONIDINE [Concomitant]
  3. LABETALOL HCL [Concomitant]

REACTIONS (1)
  - OEDEMA PERIPHERAL [None]
